FAERS Safety Report 26164303 (Version 1)
Quarter: 2025Q4

REPORT INFORMATION
  Report Type: Spontaneous
  Country: US (occurrence: US)
  Receive Date: 20251216
  Receipt Date: 20251216
  Transmission Date: 20260117
  Serious: No
  Sender: SANOFI AVENTIS
  Company Number: US-SA-2025SA372139

PATIENT
  Sex: Male

DRUGS (6)
  1. DUPIXENT [Suspect]
     Active Substance: DUPILUMAB
     Indication: Dermatitis atopic
     Dosage: 300 MG, QOW
     Route: 058
  2. TIMOLOL MALEATE [Concomitant]
     Active Substance: TIMOLOL MALEATE
  3. SILDENAFIL CITRATE [Concomitant]
     Active Substance: SILDENAFIL CITRATE
  4. TACROLIMUS [Concomitant]
     Active Substance: TACROLIMUS
  5. TRIAMCINOLONE [Concomitant]
     Active Substance: TRIAMCINOLONE
  6. BETAMETHASONE [Concomitant]
     Active Substance: BETAMETHASONE

REACTIONS (1)
  - Sinusitis [Not Recovered/Not Resolved]
